FAERS Safety Report 4842818-7 (Version None)
Quarter: 2005Q4

REPORT INFORMATION
  Report Type: 
  Country: None (occurrence: None)
  Receive Date: 20051130
  Receipt Date: 20051117
  Transmission Date: 20060501
  Serious: Yes (Death, Life-Threatening, Hospitalization, Other)
  Sender: FDA-Public Use
  Company Number: 2005157506

PATIENT
  Age: 51 Year
  Sex: Female
  Weight: 110 kg

DRUGS (5)
  1. NEURONTIN [Suspect]
     Indication: EPILEPSY
     Dosage: 1200 MG (DAILY), ORAL
     Route: 048
     Dates: start: 20050901
  2. TEMOZOLOMIDE                          (TEMOZOLOMIDE) [Suspect]
     Indication: ASTROCYTOMA
     Dosage: 400 MG (400 MG, 1 IN 1 D), ORAL
     Route: 048
     Dates: start: 20051017, end: 20051021
  3. ZOFRAN [Concomitant]
  4. LEVOTHYROXINE SODIUM [Concomitant]
  5. CORGARD [Concomitant]

REACTIONS (10)
  - CEREBRAL HAEMATOMA [None]
  - CEREBRAL HAEMORRHAGE [None]
  - COMA [None]
  - EPILEPSY [None]
  - HAEMATOCRIT DECREASED [None]
  - HAEMOGLOBIN DECREASED [None]
  - HAEMORRHOIDAL HAEMORRHAGE [None]
  - NEUTROPENIA [None]
  - PETECHIAE [None]
  - THROMBOCYTOPENIA [None]
